FAERS Safety Report 12444842 (Version 2)
Quarter: 2016Q2

REPORT INFORMATION
  Report Type: Report from Study
  Country: RU (occurrence: RU)
  Receive Date: 20160607
  Receipt Date: 20160630
  Transmission Date: 20160815
  Serious: Yes (Death)
  Sender: FDA-Public Use
  Company Number: RU-TEVA-656148ISR

PATIENT
  Age: 74 Year
  Sex: Female
  Weight: 79 kg

DRUGS (6)
  1. LONQUEX [Suspect]
     Active Substance: LIPEGFILGRASTIM
     Indication: PROPHYLAXIS
     Dosage: 0 MILLIGRAM DAILY; DB: LONQUEX 6 MG OR NEULASTA 6 MG OR PLACEBO
     Route: 058
     Dates: start: 20160426, end: 20160426
  2. CISPLATIN. [Suspect]
     Active Substance: CISPLATIN
     Indication: NON-SMALL CELL LUNG CANCER
     Route: 042
     Dates: start: 20160425, end: 20160425
  3. NEULASTA [Suspect]
     Active Substance: PEGFILGRASTIM
     Indication: PROPHYLAXIS
     Dosage: 0 MILLIGRAM DAILY; DB: LONQUEX 6 MG OR NEULASTA 6 MG OR PLACEBO
     Route: 058
     Dates: start: 20160426, end: 20160426
  4. DOCETAXEL. [Suspect]
     Active Substance: DOCETAXEL
     Indication: NON-SMALL CELL LUNG CANCER
     Route: 042
     Dates: start: 20160425, end: 20160425
  5. VALERIANA [Concomitant]
     Active Substance: VALERIAN
     Indication: SLEEP DISORDER
     Dosage: 1 DOSAGE FORMS DAILY;
     Route: 048
     Dates: start: 2015, end: 20160426
  6. CORDAFEN [Concomitant]
     Indication: HYPERTENSION
     Dosage: 2-3 TIMES A DAY.
     Route: 048
     Dates: start: 2012, end: 20160426

REACTIONS (3)
  - Myocardial ischaemia [Fatal]
  - Arteriosclerosis [Fatal]
  - Cardiac failure [Fatal]

NARRATIVE: CASE EVENT DATE: 20160426
